FAERS Safety Report 21669604 (Version 1)
Quarter: 2022Q4

REPORT INFORMATION
  Report Type: Report from Study
  Country: US (occurrence: US)
  Receive Date: 20221201
  Receipt Date: 20221201
  Transmission Date: 20230112
  Serious: No
  Sender: FDA-Public Use
  Company Number: US-ABBVIE-4170648

PATIENT
  Age: 37 Year
  Sex: Male

DRUGS (3)
  1. HUMIRA [Suspect]
     Active Substance: ADALIMUMAB
     Indication: Hidradenitis
     Route: 058
     Dates: start: 20220112
  2. HUMIRA [Suspect]
     Active Substance: ADALIMUMAB
     Dosage: DAY 1 - 2 PENS
     Route: 058
     Dates: start: 20211215, end: 20211215
  3. HUMIRA [Suspect]
     Active Substance: ADALIMUMAB
     Dosage: DAY 15 - 1 PEN
     Route: 058
     Dates: start: 20211229, end: 20211229

REACTIONS (2)
  - Pruritus [Unknown]
  - Pain of skin [Unknown]

NARRATIVE: CASE EVENT DATE: 20220901
